FAERS Safety Report 4493991-4 (Version None)
Quarter: 2004Q4

REPORT INFORMATION
  Report Type: 
  Country: None (occurrence: None)
  Receive Date: 20041104
  Receipt Date: 20041104
  Transmission Date: 20050328
  Serious: Yes (Hospitalization, Disabling)
  Sender: FDA-Public Use
  Company Number: None

PATIENT
  Sex: Female
  Weight: 30.6 kg

DRUGS (17)
  1. TEMOZOLOMIDE [Suspect]
     Indication: NEOPLASM RECURRENCE
     Dosage: 100MG/M2/DAY  PO
     Route: 048
     Dates: start: 20041005, end: 20041009
  2. TEMOZOLOMIDE [Suspect]
     Indication: NEUROBLASTOMA
     Dosage: 100MG/M2/DAY  PO
     Route: 048
     Dates: start: 20041005, end: 20041009
  3. IRINOTECAN [Suspect]
     Dosage: 30MG/M2/DAY   PO
     Route: 048
     Dates: start: 20041005, end: 20041013
  4. CEFIXIME [Suspect]
     Dosage: 8MG/KG/DAY   PO
     Route: 048
     Dates: start: 20040929, end: 20041013
  5. ZITHROMAX [Concomitant]
  6. LEVOTHYROXINE SODIUM [Concomitant]
  7. BACTRIM [Concomitant]
  8. ZANTAC [Concomitant]
  9. ZOFRAN [Concomitant]
  10. CYCLOPHOSPHAMIDE [Concomitant]
  11. CELEBREX [Concomitant]
  12. ACYCLOVIR [Concomitant]
  13. FLUCONAZOLE [Concomitant]
  14. MEROPENEM [Concomitant]
  15. BENADRYL [Concomitant]
  16. ACETOMINOPHEN [Concomitant]
  17. LORAZEPAM [Concomitant]

REACTIONS (10)
  - AREFLEXIA [None]
  - CONVULSION [None]
  - DEPRESSED LEVEL OF CONSCIOUSNESS [None]
  - DIPLOPIA [None]
  - FACIAL PARESIS [None]
  - HEMIPARESIS [None]
  - HYPOTONIA [None]
  - IIIRD NERVE PARALYSIS [None]
  - PYREXIA [None]
  - SOMNOLENCE [None]
